FAERS Safety Report 12742056 (Version 1)
Quarter: 2016Q3

REPORT INFORMATION
  Report Type: Report from Study
  Country: US (occurrence: US)
  Receive Date: 20160914
  Receipt Date: 20160914
  Transmission Date: 20161109
  Serious: Yes (Hospitalization, Other)
  Sender: FDA-Public Use
  Company Number: US-ROCHE-1666067

PATIENT
  Age: 71 Year
  Sex: Male

DRUGS (4)
  1. LENALIDOMIDE [Suspect]
     Active Substance: LENALIDOMIDE
     Indication: PROSTATE CANCER
     Dosage: ON DAYS 1-14
     Route: 048
     Dates: start: 20100429
  2. DOCETAXEL. [Suspect]
     Active Substance: DOCETAXEL
     Indication: PROSTATE CANCER
     Dosage: OVER 60 MINUTES ON DAY 1
     Route: 042
     Dates: start: 20100429
  3. BEVACIZUMAB [Suspect]
     Active Substance: BEVACIZUMAB
     Indication: PROSTATE CANCER
     Dosage: OVER 30-90 MINUTES ON DAY 1 (CYCLE 21 DAYS)
     Route: 042
     Dates: start: 20100429
  4. PREDNISONE. [Suspect]
     Active Substance: PREDNISONE
     Indication: PROSTATE CANCER
     Route: 048
     Dates: start: 20100429

REACTIONS (14)
  - Thrombocytopenia [Recovered/Resolved]
  - Glucose tolerance impaired [Unknown]
  - Presyncope [Unknown]
  - Syncope [Unknown]
  - Alanine aminotransferase increased [Unknown]
  - Neutropenia [Unknown]
  - Hypotension [Recovered/Resolved]
  - Hypertension [Unknown]
  - Hypophosphataemia [Unknown]
  - Platelet count decreased [Unknown]
  - Neutrophil count decreased [Unknown]
  - White blood cell count decreased [Unknown]
  - Abdominal infection [Unknown]
  - Aspartate aminotransferase increased [Unknown]

NARRATIVE: CASE EVENT DATE: 20100615
